FAERS Safety Report 6892406-6 (Version None)
Quarter: 2010Q3

REPORT INFORMATION
  Report Type: 
  Country: None (occurrence: None)
  Receive Date: 20100731
  Receipt Date: 20080513
  Transmission Date: 20110219
  Serious: No
  Sender: FDA-Public Use
  Company Number: US-PFIZER INC-2008025669

PATIENT
  Sex: Female

DRUGS (5)
  1. NEURONTIN [Suspect]
     Indication: FIBROMYALGIA
     Dates: start: 20071201, end: 20080312
  2. LYRICA [Suspect]
     Indication: FIBROMYALGIA
     Dates: start: 20080313
  3. VALIUM [Concomitant]
  4. DICLOFENAC [Concomitant]
  5. VICODIN [Concomitant]

REACTIONS (8)
  - DIZZINESS [None]
  - DRUG INEFFECTIVE [None]
  - HAIR COLOUR CHANGES [None]
  - SKIN BURNING SENSATION [None]
  - SOMNOLENCE [None]
  - TRICHORRHEXIS [None]
  - VOMITING [None]
  - WEIGHT DECREASED [None]
